FAERS Safety Report 5546082-5 (Version None)
Quarter: 2007Q4

REPORT INFORMATION
  Report Type: 
  Country: None (occurrence: None)
  Receive Date: 20071211
  Receipt Date: 20070927
  Transmission Date: 20080405
  Serious: No
  Sender: FDA-Public Use
  Company Number: US-BRISTOL-MYERS SQUIBB COMPANY-13922117

PATIENT
  Age: 57 Year
  Sex: Female
  Weight: 63 kg

DRUGS (10)
  1. EMSAM [Suspect]
     Indication: MAJOR DEPRESSION
     Dosage: DOSE INCREASED ON 24AUG07 TO 9MG/24HRS AND ON 21SEP07,6MG/24HR,2PATCHES
     Route: 062
     Dates: start: 20070810
  2. PROVIGIL [Concomitant]
  3. TOPROL-XL [Concomitant]
  4. NORVASC [Concomitant]
  5. DEPIN [Concomitant]
  6. VITAMIN B COMPLEX CAP [Concomitant]
  7. ASCORBIC ACID [Concomitant]
  8. EPA DHA [Concomitant]
  9. I3C [Concomitant]
  10. MULTI-VITAMIN [Concomitant]

REACTIONS (1)
  - APPLICATION SITE REACTION [None]
